FAERS Safety Report 8260889-5 (Version None)
Quarter: 2012Q2

REPORT INFORMATION
  Report Type: 
  Country: None (occurrence: None)
  Receive Date: 20120405
  Receipt Date: 20120330
  Transmission Date: 20120825
  Serious: Yes (Other)
  Sender: FDA-Public Use
  Company Number: GB-ACCORD-012932

PATIENT
  Sex: Male

DRUGS (4)
  1. AVASTIN [Suspect]
     Indication: COLORECTAL CANCER
  2. FLUOROURACIL [Suspect]
  3. IRINOTECAN HCL [Suspect]
  4. LEUCOVORIN CALCIUM [Suspect]

REACTIONS (1)
  - INTESTINAL MUCOSAL HYPERTROPHY [None]
